FAERS Safety Report 15355405 (Version 1)
Quarter: 2018Q3

REPORT INFORMATION
  Report Type: Spontaneous
  Country: US (occurrence: US)
  Receive Date: 20180830
  Receipt Date: 20180830
  Transmission Date: 20181010
  Serious: Yes (Life-Threatening, Hospitalization, Other)
  Sender: FDA-Public Use
  Company Number: None

PATIENT
  Age: 76 Year
  Sex: Male
  Weight: 96.3 kg

DRUGS (7)
  1. ISORDIL [Concomitant]
     Active Substance: ISOSORBIDE DINITRATE
  2. VITAMIN D [Concomitant]
     Active Substance: CHOLECALCIFEROL
  3. SEPTRA DS [Suspect]
     Active Substance: SULFAMETHOXAZOLE\TRIMETHOPRIM
     Indication: INFECTED DERMAL CYST
     Dosage: ?          QUANTITY:1 TABLET(S);?
     Route: 048
     Dates: start: 20180516, end: 20180521
  4. COREG [Concomitant]
     Active Substance: CARVEDILOL
  5. FUROSEMIDE. [Concomitant]
     Active Substance: FUROSEMIDE
  6. ALLOPURINOL. [Suspect]
     Active Substance: ALLOPURINOL
     Indication: GOUT
     Route: 048
     Dates: end: 20180618
  7. HYDRAZINE [Concomitant]
     Active Substance: HYDRAZINE SULFATE

REACTIONS (8)
  - Tremor [None]
  - Pyrexia [None]
  - Bone marrow failure [None]
  - Hepatic enzyme increased [None]
  - Adverse drug reaction [None]
  - International normalised ratio abnormal [None]
  - Haemoglobin decreased [None]
  - Gastrointestinal haemorrhage [None]

NARRATIVE: CASE EVENT DATE: 20180523
